FAERS Safety Report 9261422 (Version 1)
Quarter: 2013Q2

REPORT INFORMATION
  Report Type: Spontaneous
  Country: HU (occurrence: HU)
  Receive Date: 20130429
  Receipt Date: 20130429
  Transmission Date: 20140414
  Serious: Yes (Other)
  Sender: FDA-Public Use
  Company Number: HU-ACTAVIS-2013-07266

PATIENT
  Age: 59 Year
  Sex: Male

DRUGS (5)
  1. CEFIXIME (UNKNOWN) [Suspect]
     Indication: INFECTION
     Dosage: UNKNOWN
     Route: 065
  2. CIPROFLOXACIN HYDROCHLORIDE (UNKNOWN) [Suspect]
     Indication: INFECTION
     Dosage: UNKNOWN
     Route: 065
  3. NORFLOXACIN (UNKNOWN) [Suspect]
     Indication: INFECTION
     Dosage: UNKNOWN
     Route: 065
  4. TRIMETHOPRIM (WATSON LABORATORIES) [Suspect]
     Indication: INFECTION
     Dosage: UNKNOWN
     Route: 065
  5. SULFAMETHOXAZOL [Suspect]
     Indication: INFECTION
     Dosage: UNKNOWN
     Route: 065

REACTIONS (13)
  - Clostridium difficile colitis [Unknown]
  - Drug eruption [Unknown]
  - Glomerulonephritis [None]
  - Arthralgia [None]
  - Spinal pain [None]
  - Rheumatoid factor increased [None]
  - Haematuria [None]
  - Leukocyturia [None]
  - Proteinuria [None]
  - Megacolon [None]
  - Renal failure acute [None]
  - Sepsis [None]
  - Hypotonia [None]
